FAERS Safety Report 9192015 (Version 1)
Quarter: 2013Q1

REPORT INFORMATION
  Report Type: Spontaneous
  Country: US (occurrence: None)
  Receive Date: 20130326
  Receipt Date: 20130326
  Transmission Date: 20140127
  Serious: No
  Sender: FDA-Public Use
  Company Number: None

PATIENT
  Age: 53 Year
  Sex: Female

DRUGS (4)
  1. STIVARGA 40MG BAYER [Suspect]
     Indication: COLORECTAL CANCER
     Dosage: 4 QD PO?~ 2 MONTHS
     Route: 048
  2. HYDROLODONE [Concomitant]
  3. METFORMIN [Concomitant]
  4. TRIAMCINOLONE [Concomitant]

REACTIONS (1)
  - Jaundice [None]
